FAERS Safety Report 7297875-8 (Version None)
Quarter: 2011Q1

REPORT INFORMATION
  Report Type: 
  Country: None (occurrence: None)
  Receive Date: 20110207
  Receipt Date: 20110131
  Transmission Date: 20110831
  Serious: Yes (Other)
  Sender: FDA-Public Use
  Company Number: CIO11001974

PATIENT
  Age: 47 Year
  Sex: Male

DRUGS (2)
  1. METAMUCIL-2 [Suspect]
     Indication: PROPHYLAXIS
     Dosage: DOSE , DAILY, ORAL
     Route: 048
  2. METAMUCIL-2 [Suspect]
     Indication: BOWEL MOVEMENT IRREGULARITY
     Dosage: DOSE , DAILY, ORAL
     Route: 048

REACTIONS (24)
  - NAUSEA [None]
  - BLOOD LACTATE DEHYDROGENASE INCREASED [None]
  - WRONG TECHNIQUE IN DRUG USAGE PROCESS [None]
  - VOMITING [None]
  - ABDOMINAL TENDERNESS [None]
  - ULTRASOUND ABDOMEN ABNORMAL [None]
  - BLOOD GLUCOSE INCREASED [None]
  - GASTROINTESTINAL SOUNDS ABNORMAL [None]
  - INCORRECT DOSE ADMINISTERED [None]
  - BLOOD SODIUM DECREASED [None]
  - NO THERAPEUTIC RESPONSE [None]
  - SMALL INTESTINAL OBSTRUCTION [None]
  - PERCUSSION TEST ABNORMAL [None]
  - RETCHING [None]
  - OBSTRUCTION GASTRIC [None]
  - FAECES PALE [None]
  - BEZOAR [None]
  - ALANINE AMINOTRANSFERASE INCREASED [None]
  - BLOOD PRESSURE INCREASED [None]
  - ABDOMINAL DISTENSION [None]
  - ABDOMINAL PAIN UPPER [None]
  - FAECAL VOLUME DECREASED [None]
  - MURPHY'S SIGN POSITIVE [None]
  - X-RAY GASTROINTESTINAL TRACT ABNORMAL [None]
